FAERS Safety Report 5839953-3 (Version None)
Quarter: 2008Q3

REPORT INFORMATION
  Report Type: 
  Country: None (occurrence: None)
  Receive Date: 20080807
  Receipt Date: 20070820
  Transmission Date: 20090109
  Serious: Yes (Hospitalization, Disabling)
  Sender: FDA-Public Use
  Company Number: 2007S1005503

PATIENT
  Age: 56 Year
  Sex: Female

DRUGS (4)
  1. EZ PREP KIT [Suspect]
     Indication: COLONOSCOPY
     Dosage: 75 ML; X1; PO
     Route: 048
     Dates: start: 20070815, end: 20070815
  2. DIOVAN [Concomitant]
  3. ACETYLSALICYLIC ACID SRT [Concomitant]
  4. INSULIN [Concomitant]

REACTIONS (2)
  - JOINT STIFFNESS [None]
  - RENAL FAILURE [None]
